FAERS Safety Report 5977039-8 (Version None)
Quarter: 2008Q4

REPORT INFORMATION
  Report Type: 
  Country: None (occurrence: None)
  Receive Date: 20081202
  Receipt Date: 20081202
  Transmission Date: 20090506
  Serious: Yes (Hospitalization)
  Sender: FDA-Public Use
  Company Number: None

PATIENT
  Sex: Male
  Weight: 91.8 kg

DRUGS (6)
  1. CYCLOPHOSPHAMIDE [Suspect]
     Dosage: 1583 MG
  2. DOXORUBICIN HYDROCHLORIDE [Suspect]
     Dosage: 106 MG
  3. G-CSF (FILGRASTIM, AMGEN) [Suspect]
     Dosage: 6 MG
  4. PREDNISONE TAB [Suspect]
     Dosage: 1000 MG
  5. RITUXIMAB (MOAB C2B8 ANTI CD20, CHIMERIC) [Suspect]
     Dosage: 800 MG
  6. VINCRISTINE SULFATE [Suspect]
     Dosage: 2 MG

REACTIONS (2)
  - FEBRILE NEUTROPENIA [None]
  - WHITE BLOOD CELL COUNT ABNORMAL [None]
